FAERS Safety Report 17792433 (Version 1)
Quarter: 2020Q2

REPORT INFORMATION
  Report Type: Spontaneous
  Country: NL (occurrence: NL)
  Receive Date: 20200515
  Receipt Date: 20200515
  Transmission Date: 20200714
  Serious: Yes (Hospitalization)
  Sender: FDA-Public Use
  Company Number: NL-TEVA-2020-NL-1234612

PATIENT
  Sex: Female
  Weight: 58 kg

DRUGS (1)
  1. PREDNISOLON [Suspect]
     Active Substance: PREDNISOLONE
     Indication: AUTOIMMUNE PANCREATITIS
     Dosage: 40 MG (8 PIECES) ONCE DAILY?THERAPY END DATE:ASKED BUT UNKNOWN
     Dates: start: 20171130

REACTIONS (2)
  - Adrenal insufficiency [Not Recovered/Not Resolved]
  - Adrenocortical insufficiency acute [Unknown]
